FAERS Safety Report 5251488-8 (Version None)
Quarter: 2007Q1

REPORT INFORMATION
  Report Type: 
  Country: None (occurrence: None)
  Receive Date: 20070228
  Receipt Date: 20060516
  Transmission Date: 20070707
  Serious: Yes (Other)
  Sender: FDA-Public Use
  Company Number: US-GLAXOSMITHKLINE-A0605845A

PATIENT
  Age: 56 Year
  Sex: Female

DRUGS (8)
  1. LAMICTAL [Suspect]
     Indication: BIPOLAR DISORDER
     Dosage: 200MG PER DAY
     Route: 048
     Dates: start: 20060101
  2. SEROQUEL [Concomitant]
  3. VISTARIL [Concomitant]
  4. PAXIL [Concomitant]
  5. INSULIN [Concomitant]
  6. NEURONTIN [Concomitant]
  7. NAPROXEN [Concomitant]
  8. LISINOPRIL [Concomitant]

REACTIONS (5)
  - ANXIETY [None]
  - CONFUSIONAL STATE [None]
  - DEPRESSION [None]
  - PAIN [None]
  - SUICIDAL IDEATION [None]
